FAERS Safety Report 19743797 (Version 1)
Quarter: 2021Q3

REPORT INFORMATION
  Report Type: Report from Study
  Country: None (occurrence: US)
  Receive Date: 20210824
  Receipt Date: 20210824
  Transmission Date: 20211014
  Serious: Yes (Hospitalization)
  Sender: FDA-Public Use
  Company Number: US-ABBVIE-21K-163-4049622-00

PATIENT
  Age: 49 Year
  Sex: Male

DRUGS (3)
  1. COVID?19 VACCINE [Concomitant]
     Indication: COVID-19 IMMUNISATION
     Dosage: 1ST COVID SHOTS
     Route: 030
     Dates: start: 20210421, end: 20210421
  2. SKYRIZI [Suspect]
     Active Substance: RISANKIZUMAB-RZAA
     Indication: PSORIASIS
     Route: 058
  3. COVID?19 VACCINE [Concomitant]
     Dosage: 2ND COVID SHOTS
     Route: 030
     Dates: start: 20210518, end: 20210518

REACTIONS (5)
  - Hypotension [Unknown]
  - Unevaluable event [Unknown]
  - Sleep apnoea syndrome [Unknown]
  - Back injury [Unknown]
  - Overdose [Unknown]

NARRATIVE: CASE EVENT DATE: 202108
